FAERS Safety Report 6572358-9 (Version None)
Quarter: 2010Q1

REPORT INFORMATION
  Report Type: 
  Country: None (occurrence: None)
  Receive Date: 20100205
  Receipt Date: 20100126
  Transmission Date: 20100710
  Serious: Yes (Hospitalization)
  Sender: FDA-Public Use
  Company Number: BE-SANOFI-AVENTIS-2010SA004901

PATIENT
  Age: 71 Year
  Sex: Male

DRUGS (3)
  1. OXALIPLATIN [Suspect]
  2. CAPECITABINE [Suspect]
     Route: 048
     Dates: start: 20091201, end: 20091201
  3. THERAPEUTIC RADIOPHARMACEUTICALS [Suspect]
     Dates: start: 20091211

REACTIONS (4)
  - BLADDER PAIN [None]
  - DYSURIA [None]
  - ENTEROVESICAL FISTULA [None]
  - FAECALURIA [None]
